FAERS Safety Report 25107351 (Version 1)
Quarter: 2025Q1

REPORT INFORMATION
  Report Type: Spontaneous
  Country: CN (occurrence: CN)
  Receive Date: 20250321
  Receipt Date: 20250321
  Transmission Date: 20250409
  Serious: Yes (Hospitalization, Other)
  Sender: NOVARTIS
  Company Number: CN-002147023-NVSC2025CN045239

PATIENT
  Age: 61 Year
  Sex: Male
  Weight: 45 kg

DRUGS (5)
  1. DABRAFENIB [Suspect]
     Active Substance: DABRAFENIB
     Indication: Lung neoplasm malignant
     Dosage: 150 MG, BID
     Route: 048
     Dates: start: 20250210, end: 20250308
  2. LEVOFLOXACIN [Concomitant]
     Active Substance: LEVOFLOXACIN
     Indication: Chronic obstructive pulmonary disease
     Dosage: 0.5 G, QD
     Route: 041
     Dates: start: 20250305, end: 20250308
  3. LEVOFLOXACIN [Concomitant]
     Active Substance: LEVOFLOXACIN
     Indication: Infection
  4. TRAMETINIB [Concomitant]
     Active Substance: TRAMETINIB
     Indication: Lung neoplasm malignant
     Dosage: 2 MG, QD
     Route: 048
     Dates: start: 20250210, end: 20250308
  5. TRAMETINIB [Concomitant]
     Active Substance: TRAMETINIB
     Indication: Neoplasm

REACTIONS (15)
  - Pyrexia [Recovering/Resolving]
  - White blood cell count decreased [Recovering/Resolving]
  - Blood pressure decreased [Recovering/Resolving]
  - Respiratory rate increased [Recovering/Resolving]
  - Blood pressure increased [Recovering/Resolving]
  - Oxygen saturation abnormal [Recovering/Resolving]
  - C-reactive protein increased [Recovering/Resolving]
  - Bronchitis chronic [Recovering/Resolving]
  - Emphysema [Recovering/Resolving]
  - Pneumonitis [Recovering/Resolving]
  - Bronchitis [Recovering/Resolving]
  - Lower respiratory tract infection [Recovering/Resolving]
  - Thyroid mass [Recovering/Resolving]
  - Mycoplasma test positive [Recovering/Resolving]
  - Lung adenocarcinoma stage III [Recovering/Resolving]

NARRATIVE: CASE EVENT DATE: 20250305
